FAERS Safety Report 4334000-7 (Version None)
Quarter: 2004Q1

REPORT INFORMATION
  Report Type: 
  Country: None (occurrence: None)
  Receive Date: 20040329
  Receipt Date: 20040115
  Transmission Date: 20041129
  Serious: No
  Sender: FDA-Public Use
  Company Number: 04P-163-0247162-00

PATIENT
  Age: 68 Year
  Sex: Female
  Weight: 97.5234 kg

DRUGS (9)
  1. HUMIRA [Suspect]
     Indication: RHEUMATOID ARTHRITIS
     Dosage: 40 MG, 1 IN 2 WK, SUBCUTANEOUS
     Route: 058
     Dates: start: 20030901
  2. METHOTREXATE [Concomitant]
  3. LEUCOVORIN CALCIUM [Concomitant]
  4. FOLIC ACID [Concomitant]
  5. LISINOPRIL [Concomitant]
  6. DIAZIDE [Concomitant]
  7. CONJUGATED ESTROGEN [Concomitant]
  8. LORATADINE [Concomitant]
  9. LANSOPRAZOLE [Concomitant]

REACTIONS (3)
  - CHILLS [None]
  - HEADACHE [None]
  - NAUSEA [None]
